FAERS Safety Report 7931884-8 (Version None)
Quarter: 2011Q4

REPORT INFORMATION
  Report Type: 
  Country: None (occurrence: None)
  Receive Date: 20111121
  Receipt Date: 20111114
  Transmission Date: 20120403
  Serious: Yes (Other)
  Sender: FDA-Public Use
  Company Number: TN-PFIZER INC-2011279633

PATIENT
  Age: 23 Day

DRUGS (1)
  1. LIDOCAINE HYDROCHLORIDE [Suspect]
     Indication: GENERAL ANAESTHESIA

REACTIONS (2)
  - TOXICITY TO VARIOUS AGENTS [None]
  - CONVULSION [None]
